FAERS Safety Report 19731958 (Version 2)
Quarter: 2021Q4

REPORT INFORMATION
  Report Type: Report from Study
  Country: US (occurrence: US)
  Receive Date: 20210820
  Receipt Date: 20211130
  Transmission Date: 20220303
  Serious: Yes (Other)
  Sender: FDA-Public Use
  Company Number: US-TAKEDA-US202018232

PATIENT
  Sex: Male

DRUGS (1)
  1. HUMAN IMMUNOGLOBULIN G [Suspect]
     Active Substance: HUMAN IMMUNOGLOBULIN G
     Indication: Primary immunodeficiency syndrome
     Dosage: 5 GRAM, 1/WEEK
     Route: 058

REACTIONS (7)
  - Internal haemorrhage [Unknown]
  - Multiple organ dysfunction syndrome [Unknown]
  - Chronic kidney disease [Unknown]
  - Infusion site reaction [Recovering/Resolving]
  - Prolapse [Unknown]
  - Vomiting [Unknown]
  - Oxygen saturation decreased [Unknown]
